FAERS Safety Report 6145141-6 (Version None)
Quarter: 2009Q2

REPORT INFORMATION
  Report Type: 
  Country: None (occurrence: None)
  Receive Date: 20090402
  Receipt Date: 20081231
  Transmission Date: 20091009
  Serious: No
  Sender: FDA-Public Use
  Company Number: 1000004192

PATIENT
  Age: 50 Year
  Sex: Female

DRUGS (2)
  1. BYSTOLIC [Suspect]
     Dosage: 5 MG (5 MG, 1 IN 1 D)
     Route: 048
  2. CHEMOTHERAPEUTICS NOS (CHEMOTHERAPEUTICS NOS) [Suspect]
     Indication: NEOPLASM MALIGNANT

REACTIONS (1)
  - ALOPECIA [None]
